FAERS Safety Report 8021115-5 (Version None)
Quarter: 2012Q1

REPORT INFORMATION
  Report Type: 
  Country: None (occurrence: None)
  Receive Date: 20120104
  Receipt Date: 20111230
  Transmission Date: 20120608
  Serious: No
  Sender: FDA-Public Use
  Company Number: US-PFIZER INC-2012000954

PATIENT
  Sex: Female

DRUGS (1)
  1. ADVIL ALLERGY SINUS [Suspect]

REACTIONS (2)
  - DRY THROAT [None]
  - NASAL DRYNESS [None]
